FAERS Safety Report 6363023-1 (Version None)
Quarter: 2009Q3

REPORT INFORMATION
  Report Type: 
  Country: None (occurrence: None)
  Receive Date: 20090919
  Receipt Date: 20090615
  Transmission Date: 20100115
  Serious: No
  Sender: FDA-Public Use
  Company Number: US-ABBOTT-09P-163-0580079-00

PATIENT
  Sex: Female
  Weight: 113.5 kg

DRUGS (6)
  1. HUMIRA [Suspect]
     Indication: CROHN'S DISEASE
     Route: 058
     Dates: start: 20081001
  2. CYMBALTA [Concomitant]
     Indication: DEPRESSION
     Route: 048
  3. CYMBALTA [Concomitant]
     Indication: FIBROMYALGIA
  4. LEVOXYL [Concomitant]
     Indication: HYPOTHYROIDISM
     Route: 048
  5. PREMARIN [Concomitant]
     Indication: HORMONE REPLACEMENT THERAPY
     Route: 048
  6. SINGULAIR [Concomitant]
     Indication: ASTHMA
     Route: 048

REACTIONS (1)
  - WRONG TECHNIQUE IN DRUG USAGE PROCESS [None]
